FAERS Safety Report 8418097-0 (Version None)
Quarter: 2012Q2

REPORT INFORMATION
  Report Type: 
  Country: None (occurrence: None)
  Receive Date: 20120607
  Receipt Date: 20120531
  Transmission Date: 20120825
  Serious: Yes (Other)
  Sender: FDA-Public Use
  Company Number: US-JNJFOC-20120601662

PATIENT
  Sex: Male

DRUGS (3)
  1. ACETAMINOPHEN [Suspect]
     Indication: PREMEDICATION
     Route: 065
  2. IBUPROFEN (ADVIL) [Suspect]
     Indication: PREMEDICATION
     Route: 065
  3. ACETAMINOPHEN [Suspect]
     Route: 065

REACTIONS (1)
  - AUTISM [None]
